FAERS Safety Report 15171109 (Version 3)
Quarter: 2019Q1

REPORT INFORMATION
  Report Type: Spontaneous
  Country: IR (occurrence: IR)
  Receive Date: 20180720
  Receipt Date: 20190125
  Transmission Date: 20190417
  Serious: Yes (Life-Threatening, Hospitalization)
  Sender: FDA-Public Use
  Company Number: IR-BAYER-2018-133320

PATIENT
  Age: 25 Year
  Sex: Female

DRUGS (4)
  1. INTERFERON BETA - 1B [Suspect]
     Active Substance: INTERFERON BETA-1B
     Indication: MULTIPLE SCLEROSIS
     Dosage: 1 ML, UNK (0.25 MG)
     Route: 058
  2. METHYLPREDNISOLONE. [Concomitant]
     Active Substance: METHYLPREDNISOLONE
     Dosage: UNK
     Route: 042
  3. METRONIDAZOLE. [Concomitant]
     Active Substance: METRONIDAZOLE
  4. LACTULOSE. [Concomitant]
     Active Substance: LACTULOSE

REACTIONS (7)
  - Thrombotic thrombocytopenic purpura [None]
  - Hepatic enzyme increased [None]
  - Haemolytic uraemic syndrome [None]
  - Muscle spasms [None]
  - Coma [None]
  - Cognitive disorder [None]
  - Depressed level of consciousness [Recovered/Resolved]
